FAERS Safety Report 6269366-4 (Version None)
Quarter: 2009Q3

REPORT INFORMATION
  Report Type: 
  Country: None (occurrence: None)
  Receive Date: 20090715
  Receipt Date: 20090707
  Transmission Date: 20100115
  Serious: Yes (Other)
  Sender: FDA-Public Use
  Company Number: US-WYE-H10081509

PATIENT
  Sex: Male

DRUGS (3)
  1. RAPAMUNE [Suspect]
     Indication: RENAL TRANSPLANT
     Dosage: UNKNOWN
     Route: 065
     Dates: start: 20030901
  2. PREDNISONE TAB [Concomitant]
  3. MYFORTIC [Concomitant]

REACTIONS (1)
  - CARDIAC FAILURE [None]
